FAERS Safety Report 7478299-7 (Version None)
Quarter: 2011Q2

REPORT INFORMATION
  Report Type: 
  Country: None (occurrence: None)
  Receive Date: 20110513
  Receipt Date: 20110511
  Transmission Date: 20111010
  Serious: Yes (Death, Other)
  Sender: FDA-Public Use
  Company Number: PHHY2011AR40160

PATIENT
  Sex: Male

DRUGS (2)
  1. CHEMOTHERAPEUTICS NOS [Suspect]
  2. STALEVO 100 [Suspect]
     Indication: PARKINSON'S DISEASE
     Dosage: 5 DF, DAILY
     Route: 048

REACTIONS (3)
  - LYMPHOMA [None]
  - GASTROINTESTINAL DISORDER [None]
  - PARKINSON'S DISEASE [None]
